FAERS Safety Report 12827410 (Version 2)
Quarter: 2016Q4

REPORT INFORMATION
  Report Type: Spontaneous
  Country: US (occurrence: US)
  Receive Date: 20161006
  Receipt Date: 20161105
  Transmission Date: 20170207
  Serious: No
  Sender: FDA-Public Use
  Company Number: US-ASTRAZENECA-2016SF04359

PATIENT
  Sex: Male

DRUGS (1)
  1. CRESTOR [Suspect]
     Active Substance: ROSUVASTATIN CALCIUM
     Dosage: 5 MG PILL, AND CUT IT INTO QUARTERS, AND HE TOOK IT EVERY OTHER DAY, ONCE IN A WHILE EVERY 3 DAYS
     Route: 048

REACTIONS (6)
  - Pain [Unknown]
  - Sleep disorder due to general medical condition, insomnia type [Unknown]
  - Off label use [Unknown]
  - Pain in extremity [Unknown]
  - Adverse drug reaction [Unknown]
  - Asthenia [Unknown]

NARRATIVE: CASE EVENT DATE: 201609
